FAERS Safety Report 7303759-9 (Version None)
Quarter: 2011Q1

REPORT INFORMATION
  Report Type: 
  Country: None (occurrence: None)
  Receive Date: 20110221
  Receipt Date: 20110211
  Transmission Date: 20110831
  Serious: Yes (Death)
  Sender: FDA-Public Use
  Company Number: ID-ROCHE-748058

PATIENT
  Age: 35 Year
  Sex: Male
  Weight: 75 kg

DRUGS (12)
  1. PARACETAMOL [Concomitant]
     Dates: start: 20100820, end: 20100822
  2. CEFTRIAXONE [Concomitant]
     Dates: start: 20100822, end: 20100822
  3. LEVOFLOXACIN [Concomitant]
     Dates: start: 20100820, end: 20100822
  4. METHYLPREDNISOLONE [Concomitant]
     Dosage: TREATMENT OUTCOME: INCOMPLETE COURSE-DEATH
     Dates: start: 20100823, end: 20100826
  5. MEROPENEM [Concomitant]
     Dates: start: 20100822, end: 20100827
  6. DEXAMETHASONE [Concomitant]
     Dates: start: 20100820, end: 20100821
  7. MIDAZOLAM [Concomitant]
     Dates: start: 20100822, end: 20100827
  8. OSELTAMIVIR [Suspect]
     Indication: AVIAN INFLUENZA
     Route: 065
     Dates: start: 20100826, end: 20100827
  9. ONDANSERTRON HCL [Concomitant]
     Dates: start: 20100820, end: 20100822
  10. METHYLPREDNISOLONE [Concomitant]
     Dates: start: 20100822, end: 20100823
  11. RANITIDINE [Concomitant]
     Dates: start: 20100820, end: 20100822
  12. OXYGEN [Concomitant]
     Dosage: OXYGEN THERAPY, DELIVARY METHOD:NASAL CANULA, FLOW: LOW FLOW
     Dates: start: 20100821, end: 20100822

REACTIONS (1)
  - ACUTE RESPIRATORY DISTRESS SYNDROME [None]
